FAERS Safety Report 23453438 (Version 2)
Quarter: 2024Q1

REPORT INFORMATION
  Report Type: Spontaneous
  Country: JP (occurrence: JP)
  Receive Date: 20240129
  Receipt Date: 20240311
  Transmission Date: 20240410
  Serious: Yes (Hospitalization)
  Sender: FDA-Public Use
  Company Number: JP-TEVA-VS-3136484

PATIENT
  Age: 69 Year
  Sex: Female

DRUGS (3)
  1. PREDNISOLONE [Suspect]
     Active Substance: PREDNISOLONE
     Indication: Systemic scleroderma
     Dosage: RECEIVING UNDER MAINTENANCE THERAPY FROM APPROXIMATELY 20 YEARS
     Route: 048
  2. AZITHROMYCIN [Concomitant]
     Active Substance: AZITHROMYCIN
     Indication: Mycobacterium abscessus infection
     Route: 065
  3. AMIKACIN [Concomitant]
     Active Substance: AMIKACIN
     Indication: Mycobacterium abscessus infection
     Route: 065

REACTIONS (4)
  - Mycobacterium abscessus infection [Recovered/Resolved]
  - Leukocytosis [Recovered/Resolved]
  - Bronchiectasis [Recovered/Resolved]
  - Pneumothorax spontaneous [Recovered/Resolved]
